FAERS Safety Report 13925789 (Version 1)
Quarter: 2017Q3

REPORT INFORMATION
  Report Type: Spontaneous
  Country: AU (occurrence: AU)
  Receive Date: 20170831
  Receipt Date: 20170831
  Transmission Date: 20171127
  Serious: Yes (Hospitalization)
  Sender: FDA-Public Use
  Company Number: AU-PURDUE-GBR-2017-0047553

PATIENT
  Age: 75 Year
  Sex: Female
  Weight: 75 kg

DRUGS (7)
  1. CELEBREX [Concomitant]
     Active Substance: CELECOXIB
  2. DEXAMETHASONE. [Concomitant]
     Active Substance: DEXAMETHASONE
  3. TRANEXAMIC ACID. [Concomitant]
     Active Substance: TRANEXAMIC ACID
  4. PREGABALIN. [Concomitant]
     Active Substance: PREGABALIN
  5. KEFLEX [Concomitant]
     Active Substance: CEPHALEXIN
  6. OXYCODONE HYDROCHLORIDE. [Suspect]
     Active Substance: OXYCODONE HYDROCHLORIDE
     Indication: PRODUCT USED FOR UNKNOWN INDICATION
     Dosage: 5 MG, DAILY
     Route: 065
     Dates: start: 20170606, end: 20170607
  7. CEFAZOLIN [Concomitant]
     Active Substance: CEFAZOLIN

REACTIONS (3)
  - Swollen tongue [Recovered/Resolved]
  - Rash [Recovered/Resolved]
  - Rash generalised [Recovered/Resolved]

NARRATIVE: CASE EVENT DATE: 20170606
